FAERS Safety Report 5133638-7 (Version None)
Quarter: 2006Q4

REPORT INFORMATION
  Report Type: 
  Country: None (occurrence: None)
  Receive Date: 20061024
  Receipt Date: 20061019
  Transmission Date: 20070319
  Serious: Yes (Other)
  Sender: FDA-Public Use
  Company Number: JP-AVENTIS-200613299JP

PATIENT
  Age: 59 Year
  Sex: Male

DRUGS (1)
  1. LASIX [Suspect]
     Route: 048

REACTIONS (1)
  - CONFUSIONAL STATE [None]
